FAERS Safety Report 10382121 (Version 3)
Quarter: 2014Q3

REPORT INFORMATION
  Report Type: Spontaneous
  Country: FR (occurrence: FR)
  Receive Date: 20140813
  Receipt Date: 20140818
  Transmission Date: 20150326
  Serious: Yes (Congenital Anomaly)
  Sender: FDA-Public Use
  Company Number: FR-PFIZER INC-2014186354

PATIENT
  Sex: Male

DRUGS (2)
  1. CYTOTEC [Suspect]
     Active Substance: MISOPROSTOL
     Dosage: 2 DF, 3X/DAY
     Route: 064
     Dates: start: 20140226, end: 20140227
  2. CYTOTEC [Suspect]
     Active Substance: MISOPROSTOL
     Indication: ABORTED PREGNANCY
     Dosage: 2 DF, 3X/DAY
     Route: 064
     Dates: start: 20140220, end: 20140221

REACTIONS (5)
  - Foetal growth restriction [Unknown]
  - Limb deformity [Unknown]
  - Renal malposition [Unknown]
  - Maternal exposure during pregnancy [Unknown]
  - Congenital hand malformation [Unknown]

NARRATIVE: CASE EVENT DATE: 2014
